FAERS Safety Report 13300680 (Version 1)
Quarter: 2017Q1

REPORT INFORMATION
  Report Type: Spontaneous
  Country: CA (occurrence: CA)
  Receive Date: 20170307
  Receipt Date: 20170307
  Transmission Date: 20170428
  Serious: Yes (Other)
  Sender: FDA-Public Use
  Company Number: CA-ROCHE-1845949

PATIENT
  Age: 42 Year
  Sex: Female
  Weight: 81 kg

DRUGS (21)
  1. ENBREL [Suspect]
     Active Substance: ETANERCEPT
     Indication: RHEUMATOID ARTHRITIS
     Route: 058
  2. ARAVA [Suspect]
     Active Substance: LEFLUNOMIDE
     Indication: PRODUCT USED FOR UNKNOWN INDICATION
     Route: 065
  3. VENTOLIN [Concomitant]
     Active Substance: ALBUTEROL SULFATE
  4. ACTEMRA [Suspect]
     Active Substance: TOCILIZUMAB
     Indication: PRODUCT USED FOR UNKNOWN INDICATION
     Route: 065
  5. SIMPONI [Suspect]
     Active Substance: GOLIMUMAB
     Indication: PRODUCT USED FOR UNKNOWN INDICATION
     Route: 058
  6. IBUPROFEN. [Concomitant]
     Active Substance: IBUPROFEN
  7. PREDNISONE. [Concomitant]
     Active Substance: PREDNISONE
  8. REACTINE (CANADA) [Concomitant]
     Active Substance: CETIRIZINE HYDROCHLORIDE
  9. VITAMIN C [Concomitant]
     Active Substance: ASCORBIC ACID
  10. CIMZIA [Suspect]
     Active Substance: CERTOLIZUMAB PEGOL
     Indication: RHEUMATOID ARTHRITIS
     Dosage: THERAPY DURATION: 29 DAYS
     Route: 058
  11. PERCOCET [Suspect]
     Active Substance: ACETAMINOPHEN\OXYCODONE HYDROCHLORIDE
     Indication: PRODUCT USED FOR UNKNOWN INDICATION
     Route: 065
  12. NUTRASEA [Concomitant]
  13. ZOPICLONE [Concomitant]
     Active Substance: ZOPICLONE
  14. PLAQUENIL [Concomitant]
     Active Substance: HYDROXYCHLOROQUINE SULFATE
  15. TYLENOL [Concomitant]
     Active Substance: ACETAMINOPHEN
  16. CIMZIA [Suspect]
     Active Substance: CERTOLIZUMAB PEGOL
     Route: 058
  17. PANTOLOC [Concomitant]
     Active Substance: PANTOPRAZOLE SODIUM
     Route: 065
  18. COENZYME Q-10 [Concomitant]
  19. CHLORHEXIDINE [Suspect]
     Active Substance: CHLORHEXIDINE
     Indication: PRODUCT USED FOR UNKNOWN INDICATION
     Route: 065
  20. METHOTREXATE. [Suspect]
     Active Substance: METHOTREXATE
     Indication: PRODUCT USED FOR UNKNOWN INDICATION
     Route: 065
  21. ORENCIA [Suspect]
     Active Substance: ABATACEPT
     Indication: PRODUCT USED FOR UNKNOWN INDICATION
     Route: 065

REACTIONS (20)
  - Lower respiratory tract infection [Unknown]
  - Pruritus generalised [Unknown]
  - Headache [Unknown]
  - Muscle spasticity [Unknown]
  - Rash [Unknown]
  - Asthenia [Unknown]
  - Joint swelling [Unknown]
  - Night sweats [Unknown]
  - Sinusitis [Unknown]
  - Vomiting [Unknown]
  - Ear pain [Unknown]
  - Peripheral swelling [Unknown]
  - Abdominal pain upper [Unknown]
  - Back pain [Unknown]
  - Body temperature increased [Unknown]
  - Insomnia [Unknown]
  - Respiratory disorder [Unknown]
  - Diarrhoea [Unknown]
  - Pain [Unknown]
  - Urticaria [Unknown]
